FAERS Safety Report 25451806 (Version 1)
Quarter: 2025Q2

REPORT INFORMATION
  Report Type: Spontaneous
  Country: US (occurrence: None)
  Receive Date: 20250617
  Receipt Date: 20250617
  Transmission Date: 20250716
  Serious: Yes (Death, Life-Threatening, Hospitalization)
  Sender: FDA-CTU
  Company Number: None

PATIENT
  Age: 62 Year
  Sex: Female
  Weight: 114 kg

DRUGS (8)
  1. TOCILIZUMAB [Suspect]
     Active Substance: TOCILIZUMAB
     Indication: Rheumatoid arthritis
     Route: 042
     Dates: start: 20230728
  2. AMLODIPINE [Concomitant]
     Active Substance: AMLODIPINE BESYLATE
  3. ATORVASTATIN [Concomitant]
     Active Substance: ATORVASTATIN
  4. INSULIN ASPART [Concomitant]
     Active Substance: INSULIN ASPART
  5. Zestoretic 20/12.5 [Concomitant]
  6. LOSARTAN [Concomitant]
     Active Substance: LOSARTAN
  7. METFORMIN [Concomitant]
     Active Substance: METFORMIN HYDROCHLORIDE
  8. URSODIOL [Concomitant]
     Active Substance: URSODIOL

REACTIONS (12)
  - Device infusion issue [None]
  - Asthenia [None]
  - Fall [None]
  - Brain stem stroke [None]
  - Liver injury [None]
  - Myositis [None]
  - Haemodialysis [None]
  - Acute kidney injury [None]
  - Intestinal ischaemia [None]
  - Pneumatosis [None]
  - Shock [None]
  - Acidosis [None]

NARRATIVE: CASE EVENT DATE: 20230728
